FAERS Safety Report 25609519 (Version 1)
Quarter: 2025Q3

REPORT INFORMATION
  Report Type: Spontaneous
  Country: US (occurrence: US)
  Receive Date: 20250727
  Receipt Date: 20250727
  Transmission Date: 20251020
  Serious: No
  Sender: SANOFI AVENTIS
  Company Number: US-SA-2025SA211480

PATIENT
  Age: 83 Year
  Sex: Male
  Weight: 76.82 kg

DRUGS (1)
  1. DUPIXENT [Suspect]
     Active Substance: DUPILUMAB
     Indication: Dermatitis atopic
     Dosage: 300 MG, QOW
     Route: 058
     Dates: end: 20250619

REACTIONS (5)
  - Dry mouth [Recovering/Resolving]
  - Ocular hyperaemia [Recovering/Resolving]
  - Gastritis [Recovering/Resolving]
  - Eye pruritus [Recovering/Resolving]
  - Oral herpes [Recovering/Resolving]

NARRATIVE: CASE EVENT DATE: 20250601
